FAERS Safety Report 14210848 (Version 1)
Quarter: 2017Q4

REPORT INFORMATION
  Report Type: Spontaneous
  Country: US (occurrence: US)
  Receive Date: 20171121
  Receipt Date: 20171121
  Transmission Date: 20180321
  Serious: No
  Sender: FDA-Public Use
  Company Number: US-BAYER-2017-222353

PATIENT
  Age: 34 Year
  Sex: Female
  Weight: 77.5 kg

DRUGS (1)
  1. MIRENA [Suspect]
     Active Substance: LEVONORGESTREL
     Dosage: 20 MCG/24HR, CONT
     Route: 015
     Dates: start: 20171031, end: 20171114

REACTIONS (1)
  - Device expulsion [None]

NARRATIVE: CASE EVENT DATE: 20171114
